FAERS Safety Report 6842957-5 (Version None)
Quarter: 2010Q3

REPORT INFORMATION
  Report Type: 
  Country: None (occurrence: None)
  Receive Date: 20100714
  Receipt Date: 20070808
  Transmission Date: 20110219
  Serious: No
  Sender: FDA-Public Use
  Company Number: US-PFIZER INC-2007066881

PATIENT
  Sex: Female
  Weight: 59.09 kg

DRUGS (6)
  1. CHANTIX [Suspect]
     Indication: SMOKING CESSATION THERAPY
     Dates: start: 20070701, end: 20070701
  2. AZULFIDINE [Concomitant]
  3. PROTONIX [Concomitant]
  4. ALL OTHER THERAPEUTIC PRODUCTS [Concomitant]
  5. FELDENE [Concomitant]
     Indication: ARTHRITIS
  6. LODINE [Concomitant]
     Indication: ARTHRITIS

REACTIONS (1)
  - NAUSEA [None]
